FAERS Safety Report 7620420-1 (Version None)
Quarter: 2011Q3

REPORT INFORMATION
  Report Type: 
  Country: None (occurrence: None)
  Receive Date: 20110719
  Receipt Date: 20110718
  Transmission Date: 20111222
  Serious: Yes (Death, Other)
  Sender: FDA-Public Use
  Company Number: PHFR2011GB03726

PATIENT
  Sex: Male

DRUGS (3)
  1. CLOZAPINE [Suspect]
     Dates: start: 20070901
  2. CLOZAPINE [Suspect]
     Indication: SCHIZOPHRENIA
     Dosage: 350 MG/DAY
     Route: 048
     Dates: start: 20070817, end: 20110601
  3. OMEPRAZOLE [Concomitant]
     Dosage: 20 MG/DAY

REACTIONS (3)
  - POLLAKIURIA [None]
  - MICTURITION URGENCY [None]
  - SUDDEN DEATH [None]
